FAERS Safety Report 10621416 (Version 2)
Quarter: 2015Q1

REPORT INFORMATION
  Report Type: Report from Study
  Country: CL (occurrence: CL)
  Receive Date: 20141203
  Receipt Date: 20150115
  Transmission Date: 20150720
  Serious: Yes (Hospitalization, Other)
  Sender: FDA-Public Use
  Company Number: CL-ROCHE-1500605

PATIENT
  Age: 50 Year
  Sex: Male
  Weight: 109 kg

DRUGS (2)
  1. LOSARTAN [Concomitant]
     Active Substance: LOSARTAN
     Indication: HYPERTENSION
     Route: 048
     Dates: start: 201309
  2. XELODA [Suspect]
     Active Substance: CAPECITABINE
     Indication: COLORECTAL CANCER
     Dosage: 14 DAY CYCLE
     Route: 048
     Dates: start: 20140901, end: 20141119

REACTIONS (2)
  - Metastases to lung [Not Recovered/Not Resolved]
  - Lung operation [Recovered/Resolved]

NARRATIVE: CASE EVENT DATE: 20141120
